FAERS Safety Report 25248839 (Version 2)
Quarter: 2025Q2

REPORT INFORMATION
  Report Type: Report from Study
  Country: US (occurrence: US)
  Receive Date: 20250429
  Receipt Date: 20250527
  Transmission Date: 20250717
  Serious: No
  Sender: AMGEN
  Company Number: US-AMGEN-USASP2025083454

PATIENT
  Age: 33 Year
  Sex: Female

DRUGS (1)
  1. PROCYSBI [Suspect]
     Active Substance: CYSTEAMINE BITARTRATE
     Indication: Cystinosis
     Dosage: 600 MILLIGRAM, Q12H (TAKE 2 PACKETS BY MOUTH TWICE DAILY)
     Route: 048

REACTIONS (4)
  - Maternal exposure during pregnancy [Unknown]
  - Amino acid level abnormal [Unknown]
  - Abdominal discomfort [Unknown]
  - Treatment noncompliance [Unknown]
